FAERS Safety Report 12953212 (Version 4)
Quarter: 2017Q1

REPORT INFORMATION
  Report Type: Spontaneous
  Country: US (occurrence: US)
  Receive Date: 20161117
  Receipt Date: 20170209
  Transmission Date: 20170428
  Serious: Yes (Hospitalization)
  Sender: FDA-Public Use
  Company Number: US-PFIZER INC-2016414985

PATIENT
  Age: 76 Year
  Sex: Female
  Weight: 78 kg

DRUGS (13)
  1. METOLAZONE. [Concomitant]
     Active Substance: METOLAZONE
     Dosage: 2.5 MG, 2 X WEEK MONDAY AND THURSDAY
     Route: 048
  2. REVATIO [Suspect]
     Active Substance: SILDENAFIL CITRATE
     Dosage: 60 MG, 3X/DAY (20MG, 3 TABS X 3 TIMES DAY)
     Route: 048
  3. PROCRIT [Concomitant]
     Active Substance: ERYTHROPOIETIN
     Dosage: 1 DF, EVERY 4 WEEKS
     Route: 058
  4. PROCRIT [Concomitant]
     Active Substance: ERYTHROPOIETIN
     Dosage: 20000 U, UNK
     Route: 058
  5. SUTENT [Suspect]
     Active Substance: SUNITINIB MALATE
  6. TORSEMIDE. [Concomitant]
     Active Substance: TORSEMIDE
     Dosage: 20 MG, 1X/DAY [EVERY MORNING]
     Route: 048
  7. LANTUS [Concomitant]
     Active Substance: INSULIN GLARGINE
     Dosage: 10 IU, 1X/DAY (BEDTIME)
     Route: 058
  8. CYANOCOBALAMIN. [Concomitant]
     Active Substance: CYANOCOBALAMIN
     Dosage: UNK (1 DOSE EVERY 4 WEEKS )
     Route: 058
  9. VITAMIN D3 [Concomitant]
     Active Substance: CHOLECALCIFEROL
     Dosage: 2000 IU, DAILY
     Route: 048
  10. TYLENOL [Concomitant]
     Active Substance: ACETAMINOPHEN
     Dosage: 650 MG, EVERY 4 HOURS AS NEEDED
     Route: 048
  11. COLACE [Concomitant]
     Active Substance: DOCUSATE SODIUM
     Dosage: 200 MG, 1X/DAY (2 CAPSULES EVERY MORNING)
     Route: 048
  12. REVATIO [Suspect]
     Active Substance: SILDENAFIL CITRATE
     Indication: PULMONARY HYPERTENSION
     Dosage: 40 MG, 3X/DAY (20 MG TAKE 2 TABS (40 MG), THREE TIMES/ DAY)
     Dates: start: 2012
  13. METOLAZONE. [Concomitant]
     Active Substance: METOLAZONE
     Dosage: 2.5 MG, DAILY
     Route: 048

REACTIONS (5)
  - Somnolence [Unknown]
  - Product use issue [Unknown]
  - Fluid retention [Recovering/Resolving]
  - Fall [Recovered/Resolved]
  - Head injury [Recovered/Resolved]

NARRATIVE: CASE EVENT DATE: 2012
